FAERS Safety Report 11972153 (Version 2)
Quarter: 2016Q1

REPORT INFORMATION
  Report Type: Report from Study
  Country: JP (occurrence: JP)
  Receive Date: 20160128
  Receipt Date: 20160211
  Transmission Date: 20160526
  Serious: No
  Sender: FDA-Public Use
  Company Number: PHJP2016JP001631

PATIENT
  Sex: Male
  Weight: 55 kg

DRUGS (8)
  1. JANUVIA [Concomitant]
     Active Substance: SITAGLIPTIN PHOSPHATE
     Indication: DIABETES MELLITUS
     Dosage: QD
     Route: 048
     Dates: start: 20120323
  2. LANIRAPID [Concomitant]
     Active Substance: METILDIGOXIN
     Indication: CARDIAC FAILURE
     Dosage: QD
     Route: 048
     Dates: start: 200401
  3. ARTIST [Concomitant]
     Active Substance: CARVEDILOL
     Indication: CARDIAC FAILURE
     Dosage: BID
     Route: 048
     Dates: start: 20111028
  4. HERBESSER [Concomitant]
     Active Substance: DILTIAZEM HYDROCHLORIDE
     Indication: CARDIAC FAILURE
     Dosage: QD
     Route: 048
     Dates: start: 20080411
  5. ENTRESTO [Suspect]
     Active Substance: SACUBITRIL\VALSARTAN
     Indication: CARDIAC FAILURE CHRONIC
     Dosage: BLINDED
     Route: 048
     Dates: start: 20150829
  6. PARAMIDIN [Concomitant]
     Active Substance: BUCOLOME
     Indication: ATRIAL FIBRILLATION
     Dosage: QW
     Route: 048
  7. WARFARIN [Concomitant]
     Active Substance: WARFARIN
     Indication: ATRIAL FIBRILLATION
     Dosage: QD
     Route: 048
  8. CRESTOR [Concomitant]
     Active Substance: ROSUVASTATIN CALCIUM
     Indication: DYSLIPIDAEMIA
     Dosage: QD
     Route: 048
     Dates: start: 20110408

REACTIONS (1)
  - No adverse event [Unknown]
